FAERS Safety Report 5221685-6 (Version None)
Quarter: 2007Q1

REPORT INFORMATION
  Report Type: 
  Country: None (occurrence: None)
  Receive Date: 20070126
  Receipt Date: 20070126
  Transmission Date: 20070707
  Serious: Yes (Other)
  Sender: FDA-Public Use
  Company Number: None

PATIENT
  Age: 59 Year
  Sex: Female
  Weight: 61.2356 kg

DRUGS (2)
  1. FACTIVE [Suspect]
     Indication: BRONCHITIS
     Dosage: ONE TABLET  DAILY
     Dates: start: 20070123
  2. STERIOD SHOT. MEDENT. [Concomitant]

REACTIONS (14)
  - ABDOMINAL PAIN [None]
  - ASTHENIA [None]
  - BODY TEMPERATURE INCREASED [None]
  - DIARRHOEA [None]
  - DYSPEPSIA [None]
  - FLUSHING [None]
  - HEART RATE INCREASED [None]
  - IMPAIRED DRIVING ABILITY [None]
  - IMPAIRED WORK ABILITY [None]
  - INSOMNIA [None]
  - NAUSEA [None]
  - ORAL INTAKE REDUCED [None]
  - THIRST [None]
  - VOMITING PROJECTILE [None]
